FAERS Safety Report 5458472-X (Version None)
Quarter: 2007Q3

REPORT INFORMATION
  Report Type: 
  Country: None (occurrence: None)
  Receive Date: 20070919
  Receipt Date: 20070402
  Transmission Date: 20080115
  Serious: No
  Sender: FDA-Public Use
  Company Number: US-ASTRAZENECA-2007UW06560

PATIENT
  Age: 13 Year
  Sex: Female
  Weight: 38.6 kg

DRUGS (4)
  1. SEROQUEL [Suspect]
     Indication: ABNORMAL BEHAVIOUR
     Route: 048
     Dates: start: 20050101
  2. LACTIMAL [Concomitant]
  3. ORAL CONTRACEPTIVES [Concomitant]
  4. SLEEP AID [Concomitant]

REACTIONS (2)
  - EDUCATIONAL PROBLEM [None]
  - HALLUCINATION [None]
